FAERS Safety Report 6943666-4 (Version None)
Quarter: 2010Q3

REPORT INFORMATION
  Report Type: 
  Country: None (occurrence: None)
  Receive Date: 20100826
  Receipt Date: 20100823
  Transmission Date: 20110219
  Serious: Yes (Death)
  Sender: FDA-Public Use
  Company Number: PHHY2010IE55459

PATIENT
  Sex: Male

DRUGS (2)
  1. ACZ885 ACZ+ [Suspect]
     Indication: TUMOUR NECROSIS FACTOR RECEPTOR-ASSOCIATED PERIODIC SYNDROME
     Dosage: EVERY 2 WEEKS
     Route: 058
  2. DIALYSIS [Concomitant]

REACTIONS (1)
  - DEATH [None]
